FAERS Safety Report 23069152 (Version 1)
Quarter: 2023Q4

REPORT INFORMATION
  Report Type: Spontaneous
  Country: US (occurrence: None)
  Receive Date: 20231016
  Receipt Date: 20231016
  Transmission Date: 20240109
  Serious: Yes (Hospitalization)
  Sender: FDA-Public Use
  Company Number: None

PATIENT
  Sex: Female

DRUGS (1)
  1. HUMIRA [Suspect]
     Active Substance: ADALIMUMAB
     Indication: Inflammatory bowel disease
     Dosage: FREQUENCY : WEEKLY;?
     Route: 058
     Dates: start: 202211

REACTIONS (5)
  - Dermatitis infected [None]
  - Skin infection [None]
  - Therapeutic product effect decreased [None]
  - Therapy interrupted [None]
  - Clostridium difficile infection [None]
